FAERS Safety Report 7901328-0 (Version None)
Quarter: 2011Q4

REPORT INFORMATION
  Report Type: 
  Country: None (occurrence: None)
  Receive Date: 20111108
  Receipt Date: 20111103
  Transmission Date: 20120403
  Serious: Yes (Hospitalization)
  Sender: FDA-Public Use
  Company Number: PHHY2011HU60304

PATIENT
  Age: 78 Year
  Sex: Female

DRUGS (8)
  1. NORVASC [Concomitant]
     Dosage: 5 MG, QD
     Route: 048
  2. PANTOPRAZOLE [Concomitant]
     Dosage: 1 DF, QD
     Route: 048
  3. ZOLEDRONOC ACID [Suspect]
     Dosage: 5 MG, UNK
     Route: 042
     Dates: start: 20100429
  4. COVEREX AS [Concomitant]
     Dosage: 1 DF, QD
     Route: 048
  5. ASPIRIN [Concomitant]
     Dosage: 1 DF, UNK
     Route: 048
  6. NOOTROPIL [Concomitant]
     Dosage: 1200 MG, QD
     Route: 048
  7. DOXIUM [Concomitant]
     Dosage: 1 DF, QD
  8. CAVINTON [Concomitant]
     Dosage: 1 DF, QD
     Route: 048

REACTIONS (13)
  - CONVULSION [None]
  - QUALITY OF LIFE DECREASED [None]
  - C-REACTIVE PROTEIN ABNORMAL [None]
  - FEELING ABNORMAL [None]
  - CHILLS [None]
  - PAIN IN EXTREMITY [None]
  - OEDEMA PERIPHERAL [None]
  - MUSCULOSKELETAL STIFFNESS [None]
  - BLOOD URIC ACID INCREASED [None]
  - INFLAMMATORY MARKER INCREASED [None]
  - TREMOR [None]
  - RED BLOOD CELL SEDIMENTATION RATE INCREASED [None]
  - PYREXIA [None]
